FAERS Safety Report 24054805 (Version 1)
Quarter: 2024Q3

REPORT INFORMATION
  Report Type: Spontaneous
  Country: US (occurrence: US)
  Receive Date: 20240705
  Receipt Date: 20240705
  Transmission Date: 20241017
  Serious: Yes (Disabling, Other)
  Sender: REGENERON
  Company Number: US-REGENERON PHARMACEUTICALS, INC.-2024-092991

PATIENT
  Sex: Male

DRUGS (2)
  1. EYLEA [Suspect]
     Active Substance: AFLIBERCEPT
     Indication: Macular degeneration
     Dosage: UNK, EVERY 90 DAYS (GETTING ABOUT 5 A YEAR), FORMULATION: UNKNOWN
     Route: 031
  2. MINERALS\VITAMINS [Concomitant]
     Active Substance: MINERALS\VITAMINS
     Indication: Product used for unknown indication
     Dosage: UNK UNK, BID

REACTIONS (4)
  - Blindness [Unknown]
  - Skin cancer [Unknown]
  - Loss of personal independence in daily activities [Unknown]
  - Impaired driving ability [Unknown]
